FAERS Safety Report 8130093-X (Version None)
Quarter: 2012Q1

REPORT INFORMATION
  Report Type: 
  Country: None (occurrence: None)
  Receive Date: 20120210
  Receipt Date: 20120208
  Transmission Date: 20120608
  Serious: Yes (Death, Hospitalization, Other)
  Sender: FDA-Public Use
  Company Number: JP-PFIZER INC-2012017491

PATIENT
  Age: 38 Year
  Sex: Male

DRUGS (2)
  1. ZITHROMAX [Suspect]
     Indication: PHARYNGITIS
     Dosage: 500 MG, 1X/DAY
     Route: 048
     Dates: start: 20120119, end: 20120120
  2. PL GRAN. [Suspect]
     Indication: PHARYNGITIS
     Dosage: 1 G, 3X/DAY
     Route: 048
     Dates: start: 20120119

REACTIONS (9)
  - FACE OEDEMA [None]
  - RENAL FAILURE [None]
  - BLOOD PRESSURE DECREASED [None]
  - RASH [None]
  - RHABDOMYOLYSIS [None]
  - RENAL IMPAIRMENT [None]
  - THROMBOTIC THROMBOCYTOPENIC PURPURA [None]
  - PLATELET COUNT DECREASED [None]
  - FLUSHING [None]
